FAERS Safety Report 22151537 (Version 1)
Quarter: 2023Q1

REPORT INFORMATION
  Report Type: Spontaneous
  Country: BR (occurrence: BR)
  Receive Date: 20230329
  Receipt Date: 20230329
  Transmission Date: 20230417
  Serious: Yes (Other)
  Sender: FDA-Public Use
  Company Number: BR-002147023-NVSC2023BR069152

PATIENT
  Sex: Female
  Weight: 103 kg

DRUGS (5)
  1. KISQALI [Suspect]
     Active Substance: RIBOCICLIB
     Indication: Breast cancer
     Dosage: 3 DOSAGE FORM, QD (FOR 21 DAYS AND BREAK FOR 7 DAYS), (63 TABLETS) (MAN: 11 JAN 2023)
     Route: 065
     Dates: start: 20220629
  2. ZOMETA [Suspect]
     Active Substance: ZOLEDRONIC ACID
     Indication: Bone disorder
     Dosage: 1 DOSAGE FORM, Q3MO (IN THE CLINIC)
     Route: 065
  3. FASLODEX [Concomitant]
     Active Substance: FULVESTRANT
     Indication: Hormone level abnormal
     Dosage: 1 DOSAGE FORM, QMO (IN THE CLINIC)
     Route: 065
  4. OSCAL D [Concomitant]
     Active Substance: CALCIUM CARBONATE\CHOLECALCIFEROL
     Indication: Vitamin D
     Dosage: 1 DOSAGE FORM, QD
     Route: 065
  5. FERROUS BISGLYCINATE [Concomitant]
     Active Substance: FERROUS BISGLYCINATE
     Indication: Blood iron
     Dosage: 1 DOSAGE FORM, QD
     Route: 065

REACTIONS (3)
  - Fallopian tube cancer [Unknown]
  - Second primary malignancy [Unknown]
  - Oestradiol increased [Unknown]
